FAERS Safety Report 17297501 (Version 1)
Quarter: 2020Q1

REPORT INFORMATION
  Report Type: Spontaneous
  Country: GB (occurrence: GB)
  Receive Date: 20200122
  Receipt Date: 20200122
  Transmission Date: 20200409
  Serious: Yes (Death)
  Sender: FDA-Public Use
  Company Number: GB-ROCHE-2522319

PATIENT
  Age: 60 Year

DRUGS (1)
  1. ROACTEMRA [Suspect]
     Active Substance: TOCILIZUMAB
     Indication: TEMPORAL ARTERITIS
     Route: 058
     Dates: start: 201808, end: 201908

REACTIONS (6)
  - Cardiac arrest [Fatal]
  - Aortic aneurysm rupture [Fatal]
  - Red blood cell sedimentation rate increased [Fatal]
  - Intermittent claudication [Fatal]
  - Night sweats [Fatal]
  - C-reactive protein increased [Fatal]
